FAERS Safety Report 25324965 (Version 1)
Quarter: 2025Q2

REPORT INFORMATION
  Report Type: Spontaneous
  Country: US (occurrence: None)
  Receive Date: 20250516
  Receipt Date: 20250516
  Transmission Date: 20250716
  Serious: Yes (Death)
  Sender: FDA-CTU
  Company Number: None

PATIENT
  Age: 4 Year
  Sex: Male

DRUGS (19)
  1. VIGABATRIN [Suspect]
     Active Substance: VIGABATRIN
     Indication: Infantile spasms
  2. KEPPRA [Concomitant]
     Active Substance: LEVETIRACETAM
  3. SODIUM CHLORIDE [Concomitant]
     Active Substance: SODIUM CHLORIDE
  4. ALBUTEROL [Concomitant]
     Active Substance: ALBUTEROL
  5. SYMBICORT [Concomitant]
     Active Substance: BUDESONIDE\FORMOTEROL FUMARATE DIHYDRATE
  6. BACLOFEN [Concomitant]
     Active Substance: BACLOFEN
  7. GLYCOPYRROLATE [Concomitant]
     Active Substance: GLYCOPYRROLATE
  8. ERYTHROMYCIN [Concomitant]
     Active Substance: ERYTHROMYCIN
  9. CLONIDINE HYDROCHLORIDE [Concomitant]
     Active Substance: CLONIDINE HYDROCHLORIDE
  10. IBUPROFEN [Concomitant]
     Active Substance: IBUPROFEN
  11. GABAPENTIN [Concomitant]
     Active Substance: GABAPENTIN
  12. ONDANSETRON HYDROCHLORIDE [Concomitant]
     Active Substance: ONDANSETRON HYDROCHLORIDE
  13. EPIDIOLEX [Concomitant]
     Active Substance: CANNABIDIOL
  14. ATROPINE SULFATE [Concomitant]
     Active Substance: ATROPINE SULFATE
  15. KONVOMEP [Concomitant]
     Active Substance: OMEPRAZOLE\SODIUM BICARBONATE
  16. CLONAZEPAM [Concomitant]
     Active Substance: CLONAZEPAM
  17. POLYETHYLENE GLYCOL 200 [Concomitant]
  18. MORPHINE SULFATE [Concomitant]
     Active Substance: MORPHINE SULFATE
  19. SCOPOLAMINE [Concomitant]
     Active Substance: SCOPOLAMINE

REACTIONS (1)
  - Death [None]

NARRATIVE: CASE EVENT DATE: 20250515
